FAERS Safety Report 24946056 (Version 1)
Quarter: 2025Q1

REPORT INFORMATION
  Report Type: Spontaneous
  Country: US (occurrence: US)
  Receive Date: 20250210
  Receipt Date: 20250210
  Transmission Date: 20250409
  Serious: No
  Sender: AUROBINDO
  Company Number: US-AUROBINDO-AUR-APL-2024-020929

PATIENT
  Age: 1 Year
  Sex: Male
  Weight: 8.9 kg

DRUGS (3)
  1. AMOXICILLIN\CLAVULANATE POTASSIUM [Suspect]
     Active Substance: AMOXICILLIN\CLAVULANATE POTASSIUM
     Indication: Ear infection
     Route: 048
     Dates: start: 20240110, end: 20240115
  2. AMOXICILLIN\CLAVULANATE POTASSIUM [Suspect]
     Active Substance: AMOXICILLIN\CLAVULANATE POTASSIUM
     Route: 048
     Dates: start: 20240128, end: 20240202
  3. PREDNISONE [Concomitant]
     Active Substance: PREDNISONE
     Indication: Rash
     Route: 065
     Dates: start: 20240205

REACTIONS (6)
  - Drug hypersensitivity [Unknown]
  - Food allergy [Unknown]
  - Hypersensitivity [Unknown]
  - Rash macular [Unknown]
  - Rash [Unknown]
  - Urticaria [Unknown]

NARRATIVE: CASE EVENT DATE: 20240115
